FAERS Safety Report 17331300 (Version 1)
Quarter: 2020Q1

REPORT INFORMATION
  Report Type: Spontaneous
  Country: US (occurrence: US)
  Receive Date: 20200128
  Receipt Date: 20200128
  Transmission Date: 20200409
  Serious: No
  Sender: FDA-Public Use
  Company Number: US-BIOGEN-2019BI00682287

PATIENT
  Age: 42 Year
  Sex: Female

DRUGS (1)
  1. TECFIDERA [Suspect]
     Active Substance: DIMETHYL FUMARATE
     Indication: MULTIPLE SCLEROSIS
     Dosage: ONE CAPSULE BY MOUTH TWO TIMES DAILY
     Route: 050
     Dates: start: 20130101

REACTIONS (2)
  - Flushing [Unknown]
  - Product dose omission [Unknown]

NARRATIVE: CASE EVENT DATE: 20130101
